FAERS Safety Report 8173881-6 (Version None)
Quarter: 2012Q1

REPORT INFORMATION
  Report Type: 
  Country: None (occurrence: None)
  Receive Date: 20120229
  Receipt Date: 20120220
  Transmission Date: 20120608
  Serious: Yes (Death, Hospitalization)
  Sender: FDA-Public Use
  Company Number: US-ELI_LILLY_AND_COMPANY-US201102002110

PATIENT
  Sex: Male

DRUGS (15)
  1. FORTEO [Suspect]
     Dosage: 20 UG, QD
  2. VITAMIN D [Concomitant]
  3. C-VITAMIN [Concomitant]
  4. FENTANYL-100 [Concomitant]
     Indication: BACK PAIN
     Dosage: 25 UG, UNK
  5. CALCIUM [Concomitant]
  6. FENTANYL-100 [Concomitant]
     Dosage: 50 UG, UNK
  7. TYLENOL                                 /SCH/ [Concomitant]
  8. PREVACID [Concomitant]
  9. COQ10 [Concomitant]
  10. FISH OIL [Concomitant]
  11. FORTEO [Suspect]
     Indication: OSTEOPOROSIS
     Dosage: 20 UG, DAILY (1/D)
     Dates: start: 20110131
  12. STOOL SOFTENER [Concomitant]
  13. NITROGLYCERIN [Concomitant]
  14. ASPIRIN [Concomitant]
  15. MAGNESIUM [Concomitant]

REACTIONS (14)
  - DIZZINESS [None]
  - NAUSEA [None]
  - PNEUMONIA [None]
  - HIATUS HERNIA [None]
  - GASTROOESOPHAGEAL REFLUX DISEASE [None]
  - POLYMEDICATION [None]
  - DYSPHAGIA [None]
  - WEIGHT DECREASED [None]
  - INJECTION SITE PAIN [None]
  - COUGH [None]
  - BACK PAIN [None]
  - DECREASED APPETITE [None]
  - CEREBROVASCULAR ACCIDENT [None]
  - AGEUSIA [None]
